FAERS Safety Report 14950166 (Version 1)
Quarter: 2018Q2

REPORT INFORMATION
  Report Type: Spontaneous
  Country: FR (occurrence: FR)
  Receive Date: 20180530
  Receipt Date: 20180530
  Transmission Date: 20180711
  Serious: Yes (Hospitalization)
  Sender: FDA-Public Use
  Company Number: FR-TEVA-2018-FR-898900

PATIENT
  Age: 56 Year
  Sex: Male

DRUGS (1)
  1. VALPROATE DE SODIUM [Suspect]
     Active Substance: VALPROATE SODIUM
     Indication: EPILEPSY
     Dosage: 2 CP LE MATIN - 1 CP LE SOIR
     Route: 048

REACTIONS (6)
  - Incoherent [Recovered/Resolved]
  - Hyperammonaemic encephalopathy [Recovered/Resolved]
  - Disorientation [Recovered/Resolved]
  - Hyperammonaemia [Recovered/Resolved]
  - Asthenia [Recovered/Resolved]
  - Vomiting [Recovered/Resolved]

NARRATIVE: CASE EVENT DATE: 20180123
